FAERS Safety Report 6423526-8 (Version None)
Quarter: 2009Q4

REPORT INFORMATION
  Report Type: 
  Country: None (occurrence: None)
  Receive Date: 20091102
  Receipt Date: 20081103
  Transmission Date: 20100525
  Serious: No
  Sender: FDA-Public Use
  Company Number: A0754823A

PATIENT
  Sex: Female

DRUGS (6)
  1. RYTHMOL SR [Suspect]
     Indication: ATRIAL FIBRILLATION
     Dosage: 325MG TWICE PER DAY
     Route: 048
     Dates: start: 20040101
  2. DECONGESTANT [Suspect]
  3. CELEXA [Suspect]
  4. ASPIRIN [Concomitant]
  5. METOPROLOL [Concomitant]
  6. ESTROVEN [Concomitant]

REACTIONS (4)
  - CHEST PAIN [None]
  - DRUG INTERACTION [None]
  - HEART RATE INCREASED [None]
  - PALPITATIONS [None]
